FAERS Safety Report 20911862 (Version 9)
Quarter: 2022Q3

REPORT INFORMATION
  Report Type: Report from Study
  Country: TR (occurrence: None)
  Receive Date: 20220603
  Receipt Date: 20220803
  Transmission Date: 20221026
  Serious: Yes (Hospitalization)
  Sender: FDA-Public Use
  Company Number: TR-ROCHE-3108539

PATIENT
  Age: 77 Year
  Sex: Female
  Weight: 50.4 kg

DRUGS (89)
  1. POLATUZUMAB VEDOTIN [Suspect]
     Active Substance: POLATUZUMAB VEDOTIN
     Indication: Diffuse large B-cell lymphoma
     Dosage: DATE OF MOST RECENT DOSE OF POLATUZUMAB VEDOTIN 76 MG PRIOR TO SAE ONSET: 09/MAY/2022
     Route: 042
     Dates: start: 20220111
  2. RITUXIMAB [Suspect]
     Active Substance: RITUXIMAB
     Indication: Diffuse large B-cell lymphoma
     Dosage: DATE OF MOST RECENT DOSE OF RITUXIMAB 555 MG PRIOR TO SAE ONSET: 09/MAY/2022
     Route: 041
     Dates: start: 20220111
  3. GEMCITABINE [Suspect]
     Active Substance: GEMCITABINE
     Indication: Diffuse large B-cell lymphoma
     Dosage: DATE OF MOST RECENT DOSE OF GEMCITABINE 1110 MG PRIOR TO SAE ONSET: 10/MAY/2022
     Route: 042
     Dates: start: 20220112
  4. OXALIPLATIN [Suspect]
     Active Substance: OXALIPLATIN
     Indication: Diffuse large B-cell lymphoma
     Dosage: DATE OF MOST RECENT DOSE OF OXALIPLATIN 148 MG PRIOR TO SAE ONSET: 10/MAY/2022
     Route: 042
     Dates: start: 20220112
  5. AMBISOME [Suspect]
     Active Substance: AMPHOTERICIN B
     Indication: Pneumonia
     Route: 042
     Dates: start: 20220628
  6. LEVOKAST [Concomitant]
     Indication: Asthma
     Dosage: 5/10 MG
     Route: 048
  7. METOFIN [Concomitant]
     Indication: Diabetes mellitus
     Route: 048
  8. QUANTAVIR [Concomitant]
     Route: 048
  9. VALTREX [Concomitant]
     Active Substance: VALACYCLOVIR HYDROCHLORIDE
     Route: 048
  10. BACTRIM [Concomitant]
     Active Substance: SULFAMETHOXAZOLE\TRIMETHOPRIM
     Route: 048
  11. PANOCER [Concomitant]
     Route: 048
  12. TAMOL (TURKEY) [Concomitant]
     Route: 048
     Dates: start: 20220111, end: 20220111
  13. TURKTIPSAN FENIRAMIN MALEAT [Concomitant]
     Route: 042
     Dates: start: 20220111, end: 20220111
  14. PRECORT-LIYO [Concomitant]
     Route: 042
     Dates: start: 20220111, end: 20220111
  15. PRECORT-LIYO [Concomitant]
     Route: 042
     Dates: start: 20220529, end: 20220602
  16. PRECORT-LIYO [Concomitant]
     Route: 042
     Dates: start: 20220628, end: 20220630
  17. DEKORT [Concomitant]
     Active Substance: DEXAMETHASONE
     Route: 042
     Dates: start: 20220112, end: 20220112
  18. NEOSET (TURKEY) [Concomitant]
     Indication: Neutrophil count decreased
     Route: 042
     Dates: start: 20220112, end: 20220112
  19. FRAVEN [Concomitant]
     Indication: Neutrophil count decreased
     Dosage: 30 MIU/0.5 ML
     Route: 030
     Dates: start: 20220119, end: 20220121
  20. FRAVEN [Concomitant]
     Dosage: 30 MIU/0.5 ML
     Route: 030
     Dates: start: 20220523, end: 20220526
  21. LEVOFLOXACIN [Concomitant]
     Active Substance: LEVOFLOXACIN
     Route: 048
     Dates: start: 20220119, end: 20220126
  22. NEUPOGEN [Concomitant]
     Active Substance: FILGRASTIM
     Route: 030
     Dates: start: 20220121, end: 20220124
  23. NEUPOGEN [Concomitant]
     Active Substance: FILGRASTIM
     Route: 030
     Dates: start: 20220211, end: 20220212
  24. NEUPOGEN [Concomitant]
     Active Substance: FILGRASTIM
     Route: 030
     Dates: start: 20220216, end: 20220217
  25. OKSAPAR [Concomitant]
     Route: 030
     Dates: start: 20220121, end: 20220121
  26. OKSAPAR [Concomitant]
     Route: 058
     Dates: start: 20220216, end: 20220224
  27. OKSAPAR [Concomitant]
     Route: 030
     Dates: start: 20220524, end: 20220607
  28. MAGNEZYUM SULFAT [Concomitant]
     Indication: COVID-19
     Route: 042
     Dates: start: 20220122, end: 20220122
  29. MAGNEZYUM SULFAT [Concomitant]
     Route: 042
     Dates: start: 20220124, end: 20220124
  30. MAGNEZYUM SULFAT [Concomitant]
     Route: 042
     Dates: start: 20220214, end: 20220214
  31. TRAMADOL HYDROCHLORIDE [Concomitant]
     Active Substance: TRAMADOL HYDROCHLORIDE
     Indication: Headache
     Route: 042
     Dates: start: 20220122, end: 20220122
  32. LASIX [Concomitant]
     Active Substance: FUROSEMIDE
     Route: 042
     Dates: start: 20220123, end: 20220123
  33. VANCOTEK [Concomitant]
     Indication: Febrile neutropenia
     Route: 042
     Dates: start: 20220211, end: 20220224
  34. VANCOTEK [Concomitant]
     Route: 042
     Dates: start: 20220411, end: 20220423
  35. IPRATOM [Concomitant]
     Indication: Asthma
     Dates: start: 20220210, end: 20220224
  36. IPRATOM [Concomitant]
     Dosage: 250MCG/2ML
     Dates: start: 20220518, end: 20220607
  37. RONKOTOL [Concomitant]
     Indication: Asthma
     Dates: start: 20220210, end: 20220211
  38. RONKOTOL [Concomitant]
     Dates: start: 20220212, end: 20220224
  39. RONKOTOL [Concomitant]
     Dates: start: 20220518, end: 20220531
  40. CORTAIR [Concomitant]
     Indication: Asthma
     Dates: start: 20220210, end: 20220211
  41. CORTAIR [Concomitant]
     Dates: start: 20220212, end: 20220224
  42. CORTAIR [Concomitant]
     Dosage: 0.25MG/ML
     Dates: start: 20220518, end: 20220607
  43. POT-K [Concomitant]
     Indication: COVID-19
     Route: 048
     Dates: start: 20220212, end: 20220212
  44. POT-K [Concomitant]
     Indication: Hypokalaemia
     Route: 048
     Dates: start: 20220213, end: 20220213
  45. POT-K [Concomitant]
     Route: 048
     Dates: start: 20220218, end: 20220219
  46. POT-K [Concomitant]
     Route: 048
     Dates: start: 20220220, end: 20220223
  47. POT-K [Concomitant]
     Route: 048
     Dates: start: 20220427, end: 20220505
  48. POT-K [Concomitant]
     Route: 048
     Dates: start: 20220523, end: 20220525
  49. POT-K [Concomitant]
     Route: 048
     Dates: start: 20220530, end: 20220602
  50. PLATELETS [Concomitant]
     Active Substance: HUMAN PLATELET, ALLOGENIC
     Indication: Platelet count decreased
     Dosage: 1 UNIT
     Route: 042
     Dates: start: 20220211, end: 20220211
  51. PLATELETS [Concomitant]
     Active Substance: HUMAN PLATELET, ALLOGENIC
     Indication: Thrombocytopenia
     Dosage: 1 UNIT
     Route: 042
     Dates: start: 20220213, end: 20220214
  52. PLATELETS [Concomitant]
     Active Substance: HUMAN PLATELET, ALLOGENIC
     Dosage: 1 UNIT
     Route: 042
     Dates: start: 20220319, end: 20220319
  53. PLATELETS [Concomitant]
     Active Substance: HUMAN PLATELET, ALLOGENIC
     Dosage: 1 UNIT
     Route: 042
     Dates: start: 20220320, end: 20220320
  54. PLATELETS [Concomitant]
     Active Substance: HUMAN PLATELET, ALLOGENIC
     Dosage: 1 UNIT
     Route: 042
     Dates: start: 20220408, end: 20220408
  55. PLATELETS [Concomitant]
     Active Substance: HUMAN PLATELET, ALLOGENIC
     Dosage: 1 UNIT
     Route: 042
     Dates: start: 20220410, end: 20220410
  56. PLATELETS [Concomitant]
     Active Substance: HUMAN PLATELET, ALLOGENIC
     Dosage: 2 UNIT
     Route: 042
     Dates: start: 20220518, end: 20220518
  57. PLATELETS [Concomitant]
     Active Substance: HUMAN PLATELET, ALLOGENIC
     Dosage: 2 UNIT
     Route: 042
     Dates: start: 20220706, end: 20220706
  58. HUMAN RED BLOOD CELL [Concomitant]
     Active Substance: HUMAN RED BLOOD CELL
     Route: 042
     Dates: start: 20220211, end: 20220211
  59. HUMAN RED BLOOD CELL [Concomitant]
     Active Substance: HUMAN RED BLOOD CELL
     Route: 042
     Dates: start: 20220212, end: 20220212
  60. HUMAN RED BLOOD CELL [Concomitant]
     Active Substance: HUMAN RED BLOOD CELL
     Route: 042
     Dates: start: 20220713, end: 20220713
  61. VORICONAZOLE [Concomitant]
     Active Substance: VORICONAZOLE
     Indication: Pneumonia
     Route: 042
     Dates: start: 20220411, end: 20220422
  62. ALDACTONE [Concomitant]
     Active Substance: SPIRONOLACTONE
     Indication: Oedema
     Route: 048
     Dates: start: 20220426, end: 20220505
  63. ALDACTONE [Concomitant]
     Active Substance: SPIRONOLACTONE
     Route: 048
     Dates: start: 20220531, end: 20220602
  64. ALDACTONE [Concomitant]
     Active Substance: SPIRONOLACTONE
     Route: 048
     Dates: start: 20220630
  65. TAZOJECT [Concomitant]
     Indication: Febrile neutropenia
     Route: 042
     Dates: start: 20220411, end: 20220423
  66. TAZOJECT [Concomitant]
     Route: 042
     Dates: start: 20220523, end: 20220525
  67. VFEND [Concomitant]
     Active Substance: VORICONAZOLE
     Indication: Pneumonia
     Route: 042
     Dates: start: 20220526, end: 20220607
  68. POSAGIL [Concomitant]
     Indication: Pneumonia
     Dates: start: 20220607
  69. MOXAI [Concomitant]
     Route: 048
     Dates: start: 20220518, end: 20220525
  70. PROTONEX [Concomitant]
     Route: 048
     Dates: start: 20220518
  71. ESMAX (TURKEY) [Concomitant]
     Route: 048
     Dates: start: 20220518, end: 20220528
  72. MAGNESIUM SULFATE [Concomitant]
     Active Substance: MAGNESIUM SULFATE
     Indication: Hypomagnesaemia
     Route: 042
     Dates: start: 20220519, end: 20220519
  73. MAXIFLU [Concomitant]
     Indication: Candida infection
     Route: 048
     Dates: start: 20220522, end: 20220607
  74. GASVIN [Concomitant]
     Route: 048
     Dates: start: 20220522
  75. FLUKOPOL [Concomitant]
     Indication: Pneumonia
     Route: 042
     Dates: start: 20220522, end: 20220522
  76. FLUKOPOL [Concomitant]
     Route: 042
     Dates: start: 20220523, end: 20220528
  77. VANCOMAX [Concomitant]
     Indication: Febrile neutropenia
     Route: 042
     Dates: start: 20220523, end: 20220525
  78. DUPHALAC [Concomitant]
     Active Substance: LACTULOSE
     Route: 048
     Dates: start: 20220526, end: 20220528
  79. DUPHALAC [Concomitant]
     Active Substance: LACTULOSE
     Dosage: 670MG/ML
     Route: 048
     Dates: start: 20220601, end: 20220607
  80. MEROSID [Concomitant]
     Indication: Pneumonia
     Route: 042
  81. NYSTATIN [Concomitant]
     Active Substance: NYSTATIN
     Indication: Candida infection
     Dosage: DOSE 1E+05 IU
     Route: 048
     Dates: start: 20220520, end: 20220607
  82. LASEMID [Concomitant]
     Dosage: STRENGTH 20MG/2ML
     Route: 042
     Dates: start: 20220601, end: 20220603
  83. NAKOUT [Concomitant]
     Indication: Pneumonia
     Dosage: 300MG/3ML
     Route: 042
     Dates: start: 20220602, end: 20220607
  84. NAKOUT [Concomitant]
     Dosage: 300MG/3ML
     Route: 042
     Dates: start: 20220628, end: 20220701
  85. PARTEMOL [Concomitant]
     Route: 042
     Dates: start: 20220627, end: 20220628
  86. FLEBOGAMMA [Concomitant]
     Active Substance: HUMAN IMMUNOGLOBULIN G
     Route: 042
     Dates: start: 20220628, end: 20220629
  87. PAROL [Concomitant]
     Active Substance: ACETAMINOPHEN
     Indication: Headache
     Route: 042
     Dates: start: 20220122, end: 20220122
  88. PAROL [Concomitant]
     Active Substance: ACETAMINOPHEN
     Indication: COVID-19
     Route: 042
     Dates: start: 20220211, end: 20220211
  89. PAROL [Concomitant]
     Active Substance: ACETAMINOPHEN
     Indication: Abdominal pain upper
     Route: 048
     Dates: start: 20220628, end: 20220703

REACTIONS (2)
  - Hypokalaemia [Recovered/Resolved]
  - Hypokalaemia [Recovered/Resolved]

NARRATIVE: CASE EVENT DATE: 20220522
